FAERS Safety Report 24040933 (Version 2)
Quarter: 2024Q3

REPORT INFORMATION
  Report Type: Spontaneous
  Country: DE (occurrence: None)
  Receive Date: 20240702
  Receipt Date: 20240703
  Transmission Date: 20241017
  Serious: Yes (Other)
  Sender: ASTRAZENECA
  Company Number: 2024A147592

PATIENT
  Sex: Male

DRUGS (1)
  1. ACALABRUTINIB [Suspect]
     Active Substance: ACALABRUTINIB
     Indication: Chronic lymphocytic leukaemia
     Route: 048

REACTIONS (6)
  - Acquired gene mutation [Unknown]
  - Platelet count decreased [Unknown]
  - Malignant neoplasm progression [Unknown]
  - White blood cell count increased [Unknown]
  - Haematoma [Unknown]
  - Peripheral swelling [Unknown]
